APPROVED DRUG PRODUCT: PROCAINAMIDE HYDROCHLORIDE
Active Ingredient: PROCAINAMIDE HYDROCHLORIDE
Strength: 500MG
Dosage Form/Route: CAPSULE;ORAL
Application: A087543 | Product #001
Applicant: ASCOT HOSP PHARMACEUTICALS INC DIV TRAVENOL LABORATORIES INC
Approved: Jan 8, 1982 | RLD: No | RS: No | Type: DISCN